FAERS Safety Report 6742737-5 (Version None)
Quarter: 2010Q2

REPORT INFORMATION
  Report Type: 
  Country: None (occurrence: None)
  Receive Date: 20100526
  Receipt Date: 20091109
  Transmission Date: 20101027
  Serious: No
  Sender: FDA-Public Use
  Company Number: US-ABBOTT-09P-163-0608387-00

PATIENT
  Sex: Male
  Weight: 63.56 kg

DRUGS (12)
  1. ZEMPLAR [Suspect]
     Indication: NEPHROPATHY
     Dates: start: 20080101
  2. ZEGERID [Concomitant]
     Indication: GASTROOESOPHAGEAL REFLUX DISEASE
  3. AMITIZA [Concomitant]
     Indication: CONSTIPATION
  4. LEVOTHYROXINE SODIUM [Concomitant]
     Indication: HYPOTHYROIDISM
  5. VITAMIN D [Concomitant]
     Indication: DRUG USE FOR UNKNOWN INDICATION
  6. COUMADIN [Concomitant]
     Indication: ANTICOAGULANT THERAPY
  7. METOPROLOL [Concomitant]
     Indication: HYPERTENSION
  8. LISINOPRIL [Concomitant]
     Indication: HYPERTENSION
  9. POTASSIUM CHLORIDE [Concomitant]
     Indication: BLOOD POTASSIUM DECREASED
  10. FUROSEMIDE [Concomitant]
     Indication: OEDEMA PERIPHERAL
  11. GLIPIZIDE [Concomitant]
     Indication: DIABETES MELLITUS
  12. ZOCOR [Concomitant]
     Indication: BLOOD CHOLESTEROL INCREASED

REACTIONS (2)
  - MEMORY IMPAIRMENT [None]
  - TREMOR [None]
